FAERS Safety Report 6534953-2 (Version None)
Quarter: 2010Q1

REPORT INFORMATION
  Report Type: 
  Country: None (occurrence: None)
  Receive Date: 20100111
  Receipt Date: 20100111
  Transmission Date: 20100710
  Serious: Yes (Hospitalization)
  Sender: FDA-Public Use
  Company Number: None

PATIENT
  Sex: Male
  Weight: 116 kg

DRUGS (1)
  1. RAPAMUNE [Suspect]
     Dosage: 41 MG

REACTIONS (6)
  - HYPERKALAEMIA [None]
  - LIVER FUNCTION TEST ABNORMAL [None]
  - NEPHROPATHY TOXIC [None]
  - RENAL FAILURE ACUTE [None]
  - RESPIRATORY FAILURE [None]
  - VENOOCCLUSIVE LIVER DISEASE [None]
